FAERS Safety Report 4682368-4 (Version None)
Quarter: 2005Q2

REPORT INFORMATION
  Report Type: 
  Country: None (occurrence: None)
  Receive Date: 20050602
  Receipt Date: 20050602
  Transmission Date: 20051028
  Serious: Yes (Other)
  Sender: FDA-Public Use
  Company Number: None

PATIENT
  Age: 74 Year
  Sex: Female
  Weight: 48.0813 kg

DRUGS (1)
  1. CELEBREX [Suspect]
     Indication: OSTEOARTHRITIS
     Dosage: 200 MG 1 X DAILY ORAL
     Route: 048
     Dates: start: 20030101, end: 20050101

REACTIONS (4)
  - EPISTAXIS [None]
  - GASTRITIS [None]
  - MALAISE [None]
  - NAUSEA [None]
